FAERS Safety Report 5848782-6 (Version None)
Quarter: 2008Q3

REPORT INFORMATION
  Report Type: 
  Country: None (occurrence: None)
  Receive Date: 20080814
  Receipt Date: 20080801
  Transmission Date: 20090109
  Serious: Yes (Hospitalization)
  Sender: FDA-Public Use
  Company Number: 231601J07USA

PATIENT
  Age: 63 Year
  Sex: Female
  Weight: 61.6892 kg

DRUGS (6)
  1. REBIF [Suspect]
     Indication: MULTIPLE SCLEROSIS
     Dosage: 44 MCG, 3 IN 1 WEEKS, SUBCUTANEOUS
     Route: 058
     Dates: start: 20060904, end: 20071015
  2. LEVOTHYROXINE SODIUM [Concomitant]
  3. ZOCOR [Concomitant]
  4. ASPIRIN [Concomitant]
  5. CALCIUM (CALCIUM-SANDOZ /00009901) [Concomitant]
  6. LEXAPRO [Concomitant]

REACTIONS (4)
  - CEREBROVASCULAR ACCIDENT [None]
  - CYST [None]
  - MUSCLE SPASMS [None]
  - SPINAL DISORDER [None]
